FAERS Safety Report 7184695-8 (Version None)
Quarter: 2010Q4

REPORT INFORMATION
  Report Type: 
  Country: None (occurrence: None)
  Receive Date: 20101123
  Receipt Date: 20100803
  Transmission Date: 20110411
  Serious: No
  Sender: FDA-Public Use
  Company Number: 016844

PATIENT
  Sex: Male
  Weight: 94.8 kg

DRUGS (4)
  1. CIMZIA [Suspect]
     Indication: CROHN'S DISEASE
     Dosage: (2 SHOTS MONTHLY SUBCUTANEOUS)
     Route: 058
     Dates: start: 20100706
  2. OMEPRAZOLE [Concomitant]
  3. DICYCLOMINE [Concomitant]
  4. EXCEDRIN /00214201/ [Concomitant]

REACTIONS (3)
  - ANXIETY [None]
  - CHEST PAIN [None]
  - NAUSEA [None]
